FAERS Safety Report 13343184 (Version 1)
Quarter: 2017Q1

REPORT INFORMATION
  Report Type: Spontaneous
  Country: US (occurrence: US)
  Receive Date: 20170316
  Receipt Date: 20170316
  Transmission Date: 20170428
  Serious: Yes (Other)
  Sender: FDA-Public Use
  Company Number: US-ALLERGAN-1635628US

PATIENT
  Sex: Female

DRUGS (2)
  1. OZURDEX [Suspect]
     Active Substance: DEXAMETHASONE
     Indication: MACULAR OEDEMA
  2. OZURDEX [Suspect]
     Active Substance: DEXAMETHASONE
     Indication: RADIATION RETINOPATHY
     Dosage: 0.7 MG, SINGLE
     Route: 031
     Dates: start: 2015, end: 2015

REACTIONS (2)
  - Off label use [Unknown]
  - Intraocular pressure increased [Unknown]
